FAERS Safety Report 7105503-7 (Version None)
Quarter: 2010Q4

REPORT INFORMATION
  Report Type: 
  Country: None (occurrence: None)
  Receive Date: 20101116
  Receipt Date: 20101101
  Transmission Date: 20110411
  Serious: Yes (Other)
  Sender: FDA-Public Use
  Company Number: US-ROCHE-718608

PATIENT
  Sex: Male
  Weight: 79.4 kg

DRUGS (1)
  1. ACCUTANE [Suspect]
     Indication: ACNE
     Route: 065
     Dates: start: 20000523, end: 20001001

REACTIONS (5)
  - CROHN'S DISEASE [None]
  - GASTROINTESTINAL INJURY [None]
  - ILEAL STENOSIS [None]
  - NEPHROLITHIASIS [None]
  - SACROILIITIS [None]
